FAERS Safety Report 9501427 (Version 1)
Quarter: 2013Q1

REPORT INFORMATION
  Report Type: Spontaneous
  Country: US (occurrence: None)
  Receive Date: 20130107
  Receipt Date: 20130107
  Transmission Date: 20140127
  Serious: No
  Sender: FDA-Public Use
  Company Number: PHEH2012US014514

PATIENT
  Age: 38 Year
  Sex: Female
  Weight: 151.9 kg

DRUGS (7)
  1. GILENYA (FTY) CAPSULE, 0.5MG [Suspect]
     Indication: MULTIPLE SCLEROSIS
  2. ULTRAM (TRAMADOL HYDROCHLORIDE) [Concomitant]
  3. METHYLPREDNISOLONE (METHYLPREDNISOLONE) [Concomitant]
  4. VICODIN (HYDROCODONE BITARTRATE, PARACETAMOL) [Concomitant]
  5. CELEBREX (CELECOXIB) [Concomitant]
  6. TRILEPTAL (OXCARBAZEPINE) [Concomitant]
  7. VITAMIN D (ERGOCALCIFEROL) [Concomitant]

REACTIONS (41)
  - Heart rate irregular [None]
  - Amnesia [None]
  - Pain [None]
  - Muscle spasticity [None]
  - Urinary hesitation [None]
  - Nuclear magnetic resonance imaging abnormal [None]
  - Micturition urgency [None]
  - Pollakiuria [None]
  - Dysphagia [None]
  - Diplopia [None]
  - Terminal insomnia [None]
  - Fatigue [None]
  - Vertigo [None]
  - Memory impairment [None]
  - Coordination abnormal [None]
  - Hypoaesthesia [None]
  - Gait disturbance [None]
  - Dyskinesia [None]
  - Somnolence [None]
  - Arthralgia [None]
  - Muscle spasms [None]
  - Paraparesis [None]
  - Neck pain [None]
  - Urinary incontinence [None]
  - Muscular weakness [None]
  - Abdominal pain [None]
  - Constipation [None]
  - Nausea [None]
  - Contusion [None]
  - Wheezing [None]
  - Intervertebral disc protrusion [None]
  - Radiculitis cervical [None]
  - Oedema peripheral [None]
  - Sleep disorder [None]
  - Paraesthesia [None]
  - Asthenia [None]
  - Blood pressure increased [None]
  - Dizziness [None]
  - Cough [None]
  - Back pain [None]
  - Headache [None]
